FAERS Safety Report 13194504 (Version 1)
Quarter: 2017Q1

REPORT INFORMATION
  Report Type: Not Available
  Country: None (occurrence: US)
  Receive Date: 20170207
  Receipt Date: 20170207
  Transmission Date: 20170428
  Serious: Yes (Other)
  Sender: FDA-Public Use
  Company Number: US-AKORN-48626

PATIENT
  Sex: Female

DRUGS (1)
  1. THERATEARS STERILID EYELID CLEANSER [Suspect]
     Active Substance: TEA TREE OIL

REACTIONS (5)
  - Hypersensitivity [None]
  - Eyelid pain [None]
  - Eye swelling [None]
  - Eyelid irritation [Unknown]
  - Scab [None]
